FAERS Safety Report 18548510 (Version 2)
Quarter: 2020Q4

REPORT INFORMATION
  Report Type: Spontaneous
  Country: SI (occurrence: SI)
  Receive Date: 20201126
  Receipt Date: 20201204
  Transmission Date: 20210114
  Serious: Yes (Hospitalization, Other)
  Sender: FDA-Public Use
  Company Number: SI-ROCHE-2720534

PATIENT
  Age: 33 Year

DRUGS (3)
  1. CAPECITABINE. [Suspect]
     Active Substance: CAPECITABINE
     Indication: COLORECTAL CANCER
     Route: 065
     Dates: start: 202002, end: 202006
  2. FOLFOX [Concomitant]
     Active Substance: FLUOROURACIL\LEUCOVORIN CALCIUM\OXALIPLATIN
  3. PANITUMUMAB [Concomitant]
     Active Substance: PANITUMUMAB

REACTIONS (16)
  - Decreased appetite [Unknown]
  - Carbohydrate antigen 19-9 increased [Unknown]
  - Tumour invasion [Unknown]
  - Anaemia [Unknown]
  - General physical health deterioration [Unknown]
  - Spinal pain [Unknown]
  - Weight decreased [Unknown]
  - Insomnia [Unknown]
  - Fatigue [Unknown]
  - Skin induration [Unknown]
  - Diarrhoea [Unknown]
  - Malnutrition [Unknown]
  - Diarrhoea [Unknown]
  - Mass [Unknown]
  - Metastasis [Unknown]
  - Fatigue [Unknown]

NARRATIVE: CASE EVENT DATE: 202007
